FAERS Safety Report 10184959 (Version 3)
Quarter: 2014Q3

REPORT INFORMATION
  Report Type: Spontaneous
  Country: AU (occurrence: None)
  Receive Date: 20140519
  Receipt Date: 20140722
  Transmission Date: 20150326
  Serious: Yes (Hospitalization)
  Sender: FDA-Public Use
  Company Number: AUR-APL-2014-05708

PATIENT
  Sex: Male

DRUGS (3)
  1. AURO-QUETIAPINE 200 [Suspect]
     Active Substance: QUETIAPINE
     Indication: PRODUCT USED FOR UNKNOWN INDICATION
     Dosage: (200 MG,1 D)
     Route: 064
  2. LAMOTRIGINE (LAMOTRIGINE) [Concomitant]
     Active Substance: LAMOTRIGINE
  3. ESCITALOPRAM [Concomitant]
     Active Substance: ESCITALOPRAM OXALATE

REACTIONS (7)
  - Drug withdrawal syndrome neonatal [None]
  - Yawning [None]
  - Maternal drugs affecting foetus [None]
  - Somnolence neonatal [None]
  - Hyperreflexia [None]
  - Sneezing [None]
  - Psychomotor hyperactivity [None]

NARRATIVE: CASE EVENT DATE: 20120910
